FAERS Safety Report 23884277 (Version 4)
Quarter: 2025Q2

REPORT INFORMATION
  Report Type: Report from Study
  Country: US (occurrence: US)
  Receive Date: 20240522
  Receipt Date: 20250417
  Transmission Date: 20250717
  Serious: Yes (Other)
  Sender: ASTELLAS
  Company Number: US-ASTELLAS-2024US014146

PATIENT
  Age: 57 Year
  Sex: Female

DRUGS (2)
  1. FEZOLINETANT [Suspect]
     Active Substance: FEZOLINETANT
     Indication: Menopausal symptoms
     Route: 065
     Dates: start: 20240222
  2. FEZOLINETANT [Suspect]
     Active Substance: FEZOLINETANT
     Indication: Menopausal symptoms
     Route: 065

REACTIONS (1)
  - Hepatic enzyme increased [Unknown]

NARRATIVE: CASE EVENT DATE: 20240508
